FAERS Safety Report 7199505-2 (Version None)
Quarter: 2010Q4

REPORT INFORMATION
  Report Type: 
  Country: None (occurrence: None)
  Receive Date: 20101228
  Receipt Date: 20101215
  Transmission Date: 20110411
  Serious: Yes (Other)
  Sender: FDA-Public Use
  Company Number: PHHY2010AU86196

PATIENT

DRUGS (1)
  1. ACLASTA [Suspect]
     Dosage: 5 MG
     Route: 042

REACTIONS (3)
  - BLOOD PRESSURE ABNORMAL [None]
  - OCCIPITAL NEURALGIA [None]
  - SYNCOPE [None]
